FAERS Safety Report 4379263-7 (Version None)
Quarter: 2004Q2

REPORT INFORMATION
  Report Type: 
  Country: None (occurrence: None)
  Receive Date: 20040617
  Receipt Date: 20040607
  Transmission Date: 20050107
  Serious: Yes (Hospitalization)
  Sender: FDA-Public Use
  Company Number: DK-BRISTOL-MYERS SQUIBB COMPANY-12607016

PATIENT
  Age: 51 Year
  Sex: Male
  Weight: 84 kg

DRUGS (4)
  1. CISPLATIN [Suspect]
     Indication: BLADDER CANCER
     Dosage: THERAPY DATES 05-DEC-2003 TO 19-MAR-2004; CUMULATIVE DOSE: 650 MG
     Route: 042
     Dates: start: 20040319, end: 20040319
  2. PACLITAXEL [Suspect]
     Indication: BLADDER CANCER
     Dosage: THERAPY DATES 05-DEC-2003 TO 26-MAR-2004; CUMULATIVE DOSE: 1406 MG
     Route: 042
     Dates: start: 20040326, end: 20040326
  3. GEMCITABINE [Suspect]
     Indication: BLADDER CANCER
     Dosage: THERAPY DATES 05-DEC-2003 TO 26-MAR-2004; CUMULATIVE DOSE: 17670 MG
     Route: 042
     Dates: start: 20040326, end: 20040326
  4. BENDROFLUMETHIAZIDE + CALCIUM CHLORIDE [Concomitant]
     Dates: start: 20031228

REACTIONS (2)
  - EPISTAXIS [None]
  - THROMBOCYTOPENIA [None]
